FAERS Safety Report 8260870-6 (Version None)
Quarter: 2012Q2

REPORT INFORMATION
  Report Type: 
  Country: None (occurrence: None)
  Receive Date: 20120402
  Receipt Date: 20120330
  Transmission Date: 20120825
  Serious: Yes (Other)
  Sender: FDA-Public Use
  Company Number: 2012-027685

PATIENT
  Sex: Female

DRUGS (1)
  1. ALKA-SELTZER PLUS COLD SPARKLING ORIGINAL (ACETYLSALIC ACID + CHLORPHE [Suspect]
     Indication: NASOPHARYNGITIS
     Dosage: ,ORAL
     Route: 048

REACTIONS (1)
  - HAEMORRHAGE [None]
